FAERS Safety Report 14187339 (Version 1)
Quarter: 2017Q4

REPORT INFORMATION
  Report Type: Spontaneous
  Country: US (occurrence: US)
  Receive Date: 20171113
  Receipt Date: 20171113
  Transmission Date: 20180321
  Serious: Yes (Other)
  Sender: FDA-Public Use
  Company Number: None

PATIENT
  Age: 43 Year
  Sex: Male

DRUGS (2)
  1. BENZONATATE. [Concomitant]
     Active Substance: BENZONATATE
  2. DOXYCYCLINE HYCLATE. [Suspect]
     Active Substance: DOXYCYCLINE HYCLATE
     Route: 048
     Dates: start: 20171109, end: 20171113

REACTIONS (3)
  - Renal impairment [None]
  - Contusion [None]
  - Dermatitis [None]

NARRATIVE: CASE EVENT DATE: 20171113
